FAERS Safety Report 6580862-2 (Version None)
Quarter: 2010Q1

REPORT INFORMATION
  Report Type: 
  Country: None (occurrence: None)
  Receive Date: 20100203
  Receipt Date: 20100119
  Transmission Date: 20100710
  Serious: Yes (Other)
  Sender: FDA-Public Use
  Company Number: 2009S1005289

PATIENT
  Age: 53 Year
  Sex: Male

DRUGS (4)
  1. EZ PREP KIT [Suspect]
     Indication: COLONOSCOPY
     Dosage: 75 ML;TOTAL;PO
     Route: 048
     Dates: start: 20080625, end: 20080625
  2. LISINOPRIL [Concomitant]
  3. HYDROCHLOROTHIAZIDE [Concomitant]
  4. ZESTRIL [Concomitant]

REACTIONS (3)
  - BLOOD CREATININE INCREASED [None]
  - GLOMERULAR FILTRATION RATE DECREASED [None]
  - RENAL DISORDER [None]
